FAERS Safety Report 21806398 (Version 1)
Quarter: 2023Q1

REPORT INFORMATION
  Report Type: Spontaneous
  Country: US (occurrence: US)
  Receive Date: 20230102
  Receipt Date: 20230102
  Transmission Date: 20230417
  Serious: No
  Sender: FDA-Public Use
  Company Number: US-BIOVITRUM-2022US15759

PATIENT
  Sex: Male
  Weight: 9 kg

DRUGS (13)
  1. SYNAGIS [Suspect]
     Active Substance: PALIVIZUMAB
     Indication: Pulmonary dysmaturity syndrome
     Dosage: 50 MG SDV/INJ PF 0.5 ML 1^S
  2. LEVETIRACETAM [Concomitant]
     Active Substance: LEVETIRACETAM
     Dosage: 100 MG/ML SOLUTION
  3. FAMOTIDINE [Concomitant]
     Active Substance: FAMOTIDINE
     Dosage: 40 MG/5 ML SUSP RECON
  4. CHILDRENS TYLENOL [Concomitant]
     Active Substance: ACETAMINOPHEN
  5. SYNAGIS [Suspect]
     Active Substance: PALIVIZUMAB
     Indication: Developmental hip dysplasia
  6. SYNAGIS [Suspect]
     Active Substance: PALIVIZUMAB
     Indication: Pulmonary artery stenosis
  7. SYNAGIS [Suspect]
     Active Substance: PALIVIZUMAB
     Indication: Auditory disorder
  8. SYNAGIS [Suspect]
     Active Substance: PALIVIZUMAB
     Indication: Atrial septal defect
  9. SYNAGIS [Suspect]
     Active Substance: PALIVIZUMAB
     Indication: Bronchopulmonary dysplasia
  10. ALBUTEROL SULFATE [Concomitant]
     Active Substance: ALBUTEROL SULFATE
  11. SYNAGIS [Suspect]
     Active Substance: PALIVIZUMAB
     Indication: Congenital anomaly
  12. SYNAGIS [Suspect]
     Active Substance: PALIVIZUMAB
     Indication: Premature baby
  13. SYNAGIS [Suspect]
     Active Substance: PALIVIZUMAB
     Indication: Dependence on oxygen therapy

REACTIONS (2)
  - COVID-19 [Unknown]
  - Viral infection [Unknown]
